FAERS Safety Report 7763482-3 (Version None)
Quarter: 2011Q3

REPORT INFORMATION
  Report Type: 
  Country: None (occurrence: None)
  Receive Date: 20110920
  Receipt Date: 20110915
  Transmission Date: 20111222
  Serious: Yes (Other)
  Sender: FDA-Public Use
  Company Number: CO-PFIZER INC-2011032234

PATIENT
  Sex: Female
  Weight: 2.5 kg

DRUGS (1)
  1. DOSTINEX [Suspect]
     Indication: BLOOD PROLACTIN ABNORMAL
     Dosage: 0.5 MG, UNK
     Route: 064
     Dates: end: 20110601

REACTIONS (3)
  - MATERNAL EXPOSURE DURING PREGNANCY [None]
  - SMALL FOR DATES BABY [None]
  - FOETAL GROWTH RESTRICTION [None]
